FAERS Safety Report 15727524 (Version 3)
Quarter: 2019Q1

REPORT INFORMATION
  Report Type: Spontaneous
  Country: JP (occurrence: JP)
  Receive Date: 20181217
  Receipt Date: 20190104
  Transmission Date: 20190417
  Serious: Yes (Hospitalization, Other)
  Sender: FDA-Public Use
  Company Number: JP-009507513-1812JPN007729

PATIENT
  Age: 81 Year
  Sex: Female

DRUGS (3)
  1. GLACTIV [Suspect]
     Active Substance: SITAGLIPTIN
     Indication: TYPE 2 DIABETES MELLITUS
     Dosage: 50 MILLIGRAM
     Route: 048
  2. PREDNISOLONE. [Concomitant]
     Active Substance: PREDNISOLONE
     Indication: AUTOIMMUNE HEPATITIS
     Dosage: 3 MILLIGRAM, QOD
     Route: 048
  3. METFORMIN HYDROCHLORIDE. [Suspect]
     Active Substance: METFORMIN HYDROCHLORIDE
     Indication: TYPE 2 DIABETES MELLITUS
     Dosage: 250 MILLIGRAM, QD
     Route: 048

REACTIONS (3)
  - Cardiac failure congestive [Recovered/Resolved]
  - Renal impairment [Unknown]
  - Lactic acidosis [Recovered/Resolved]

NARRATIVE: CASE EVENT DATE: 2018
